FAERS Safety Report 16035262 (Version 1)
Quarter: 2019Q1

REPORT INFORMATION
  Report Type: Spontaneous
  Country: US (occurrence: US)
  Receive Date: 20190207
  Receipt Date: 20190207
  Transmission Date: 20190418
  Serious: No
  Sender: FDA-Public Use
  Company Number: None

PATIENT
  Age: 76 Year
  Sex: Female

DRUGS (1)
  1. ORENCIA [Suspect]
     Active Substance: ABATACEPT
     Indication: RHEUMATOID ARTHRITIS
     Dates: start: 20190112

REACTIONS (4)
  - Dizziness [None]
  - Asthenia [None]
  - Blood glucose increased [None]
  - Headache [None]

NARRATIVE: CASE EVENT DATE: 20190112
